FAERS Safety Report 4997843-2 (Version None)
Quarter: 2006Q2

REPORT INFORMATION
  Report Type: 
  Country: None (occurrence: None)
  Receive Date: 20060505
  Receipt Date: 20060505
  Transmission Date: 20061013
  Serious: No
  Sender: FDA-Public Use
  Company Number: None

PATIENT
  Sex: Female
  Weight: 65.318 kg

DRUGS (1)
  1. SYNTHROID [Suspect]

REACTIONS (2)
  - DRUG INEFFECTIVE [None]
  - THERAPEUTIC RESPONSE UNEXPECTED WITH DRUG SUBSTITUTION [None]
